FAERS Safety Report 9270490 (Version 1)
Quarter: 2013Q2

REPORT INFORMATION
  Report Type: Spontaneous
  Country: US (occurrence: US)
  Receive Date: 20130503
  Receipt Date: 20130503
  Transmission Date: 20140414
  Serious: No
  Sender: FDA-Public Use
  Company Number: US-009507513-1305USA000872

PATIENT
  Age: 64 Year
  Sex: Male

DRUGS (3)
  1. ZOCOR [Suspect]
     Indication: HYPERLIPIDAEMIA
     Dosage: 40 MG ONCE A DAY
     Route: 048
  2. ACYCLOVIR [Concomitant]
  3. LORATADINE [Concomitant]
     Route: 048

REACTIONS (1)
  - Dysphagia [Not Recovered/Not Resolved]
